FAERS Safety Report 8904127 (Version 1)
Quarter: 2012Q4

REPORT INFORMATION
  Report Type: 
  Country: US (occurrence: US)
  Receive Date: 20121112
  Receipt Date: 20121112
  Transmission Date: 20130627
  Serious: No
  Sender: FDA-Public Use
  Company Number: US-COVIDIEN/TYCO HEALTHCARE/MALLINCKRODT-T201203484

PATIENT
  Age: 93 Year
  Sex: Female

DRUGS (3)
  1. FENTANYL TRANSDERMAL SYSTEM [Suspect]
     Indication: PAIN
     Dosage: 100 mcg/hr Q 72 hours
     Route: 062
     Dates: start: 20120919
  2. FENTANYL [Concomitant]
     Dosage: UNK
     Route: 062
     Dates: end: 20120916
  3. ANTIHYPERTENSIVES [Concomitant]

REACTIONS (1)
  - Restlessness [Recovered/Resolved]
